FAERS Safety Report 7942152-2 (Version None)
Quarter: 2011Q4

REPORT INFORMATION
  Report Type: 
  Country: None (occurrence: None)
  Receive Date: 20111128
  Receipt Date: 20111118
  Transmission Date: 20120403
  Serious: Yes (Death)
  Sender: FDA-Public Use
  Company Number: US-ALEXION-A201101765

PATIENT
  Sex: Female

DRUGS (3)
  1. CIPROFLOXACIN [Concomitant]
     Indication: ANTIBIOTIC PROPHYLAXIS
     Dosage: 400 MG, Q12HRS
     Route: 042
     Dates: start: 20110922
  2. MENINGOCOCCAL POLYSACCHARIDE [Concomitant]
     Indication: IMMUNISATION
     Dosage: UNK
     Dates: start: 20110912, end: 20110912
  3. SOLIRIS [Suspect]
     Indication: TRANSPLANT REJECTION
     Dosage: UNK
     Route: 042
     Dates: end: 20110928

REACTIONS (2)
  - TRANSPLANT FAILURE [None]
  - RESPIRATORY FAILURE [None]
